FAERS Safety Report 9538341 (Version 2)
Quarter: 2014Q3

REPORT INFORMATION
  Report Type: Spontaneous
  Country: US (occurrence: US)
  Receive Date: 20130920
  Receipt Date: 20140908
  Transmission Date: 20150326
  Serious: Yes (Life-Threatening, Hospitalization, Disabling, Other)
  Sender: FDA-Public Use
  Company Number: US-BAYER-2013-113557

PATIENT
  Age: 37 Year
  Sex: Female
  Weight: 77.98 kg

DRUGS (4)
  1. IBUPROFEN [IBUPROFEN] [Concomitant]
     Active Substance: IBUPROFEN
     Dosage: UNK UNK, PRN
  2. GIANVI [Suspect]
     Active Substance: DROSPIRENONE\ETHINYL ESTRADIOL
     Indication: MENSTRUAL CYCLE MANAGEMENT
  3. YAZ [Suspect]
     Active Substance: DROSPIRENONE\ETHINYL ESTRADIOL
     Indication: MENSTRUAL CYCLE MANAGEMENT
     Dosage: UNK
     Dates: start: 200904, end: 201211
  4. BEYAZ [Suspect]
     Active Substance: DROSPIRENONE\ETHINYL ESTRADIOL\LEVOMEFOLATE CALCIUM
     Indication: MENSTRUAL CYCLE MANAGEMENT

REACTIONS (19)
  - Traumatic lung injury [None]
  - Anhedonia [None]
  - Fear of death [None]
  - Fatigue [None]
  - Anxiety [None]
  - Emotional distress [None]
  - Deep vein thrombosis [None]
  - Injury [None]
  - Chest pain [None]
  - Hypoaesthesia [None]
  - Pain [None]
  - General physical health deterioration [None]
  - Dyspnoea [None]
  - Depression [None]
  - Asthenia [None]
  - Heart injury [None]
  - Pain in extremity [None]
  - Pulmonary embolism [None]
  - Quality of life decreased [None]

NARRATIVE: CASE EVENT DATE: 20121109
